FAERS Safety Report 5671404-4 (Version None)
Quarter: 2008Q1

REPORT INFORMATION
  Report Type: 
  Country: None (occurrence: None)
  Receive Date: 20080318
  Receipt Date: 20080307
  Transmission Date: 20080703
  Serious: Yes (Death)
  Sender: FDA-Public Use
  Company Number: JP-PFIZER INC-2008022248

PATIENT
  Age: 65 Year
  Sex: Female

DRUGS (11)
  1. ZYVOX [Suspect]
     Indication: STAPHYLOCOCCAL OSTEOMYELITIS
     Dosage: DAILY DOSE:1200MG
     Route: 042
     Dates: start: 20080219, end: 20080228
  2. ZYVOX [Suspect]
     Indication: MENINGITIS STAPHYLOCOCCAL
  3. ZYVOX [Suspect]
     Indication: STAPHYLOCOCCAL OSTEOMYELITIS
     Dosage: DAILY DOSE:1200MG
     Route: 048
     Dates: start: 20080229, end: 20080304
  4. ZYVOX [Suspect]
     Indication: MENINGITIS STAPHYLOCOCCAL
  5. VFEND [Suspect]
     Indication: MENINGITIS CRYPTOCOCCAL
     Dosage: DAILY DOSE:3MG/KG
     Route: 042
     Dates: start: 20080219, end: 20080228
  6. PRODIF [Suspect]
     Indication: MENINGITIS CRYPTOCOCCAL
     Dosage: DAILY DOSE:504.5MG
     Route: 042
     Dates: start: 20080229, end: 20080305
  7. ISCOTIN [Concomitant]
     Route: 048
     Dates: start: 20080219, end: 20080305
  8. RIFADIN [Concomitant]
     Route: 048
     Dates: start: 20080219, end: 20080305
  9. ESANBUTOL [Concomitant]
     Route: 048
     Dates: start: 20080219, end: 20080305
  10. PYRAMIDE [Concomitant]
     Route: 048
     Dates: start: 20080219, end: 20080305
  11. FAMOTIDINE [Concomitant]
     Route: 048

REACTIONS (2)
  - HEPATIC FAILURE [None]
  - MENINGITIS TUBERCULOUS [None]
